FAERS Safety Report 13976216 (Version 8)
Quarter: 2018Q4

REPORT INFORMATION
  Report Type: Report from Study
  Country: ES (occurrence: ES)
  Receive Date: 20170915
  Receipt Date: 20181011
  Transmission Date: 20190204
  Serious: Yes (Death, Hospitalization, Other)
  Sender: FDA-Public Use
  Company Number: ES-BRISTOL-MYERS SQUIBB COMPANY-BMS-2017-077567

PATIENT
  Age: 57 Year
  Sex: Female
  Weight: 55 kg

DRUGS (2)
  1. IPILIMUMAB [Suspect]
     Active Substance: IPILIMUMAB
     Indication: ADENOCARCINOMA OF COLON
     Dosage: 1 MG/KG, Q6WK
     Route: 042
     Dates: start: 20170412
  2. NIVOLUMAB [Suspect]
     Active Substance: NIVOLUMAB
     Indication: ADENOCARCINOMA OF COLON
     Dosage: 3 MG/KG, Q2WK
     Route: 042
     Dates: start: 20170412

REACTIONS (4)
  - Hyponatraemia [Fatal]
  - Malignant neoplasm progression [Fatal]
  - Respiratory failure [Fatal]
  - Septic shock [Fatal]

NARRATIVE: CASE EVENT DATE: 20170827
